FAERS Safety Report 19276500 (Version 3)
Quarter: 2021Q3

REPORT INFORMATION
  Report Type: Spontaneous
  Country: US (occurrence: US)
  Receive Date: 20210519
  Receipt Date: 20210716
  Transmission Date: 20211014
  Serious: Yes (Hospitalization, Disabling, Other)
  Sender: FDA-Public Use
  Company Number: US-PHARMING-PHAUS2021000243

PATIENT

DRUGS (2)
  1. RUCONEST [Suspect]
     Active Substance: HUMAN C1-ESTERASE INHIBITOR
     Dosage: UNK
     Route: 042
     Dates: start: 20171117
  2. RUCONEST [Suspect]
     Active Substance: HUMAN C1-ESTERASE INHIBITOR
     Indication: HEREDITARY ANGIOEDEMA WITH NORMAL C1 ESTERASE INHIBITOR
     Dosage: UNK
     Route: 042
     Dates: start: 20171120

REACTIONS (6)
  - Vein disorder [Unknown]
  - Periarthritis [Unknown]
  - Dyspnoea [Unknown]
  - Rotator cuff syndrome [Unknown]
  - Endotracheal intubation [Unknown]
  - Vascular access site complication [Unknown]

NARRATIVE: CASE EVENT DATE: 202007
